FAERS Safety Report 8236271-3 (Version None)
Quarter: 2012Q1

REPORT INFORMATION
  Report Type: 
  Country: None (occurrence: None)
  Receive Date: 20120326
  Receipt Date: 20120326
  Transmission Date: 20120608
  Serious: No
  Sender: FDA-Public Use
  Company Number: None

PATIENT
  Sex: Male
  Weight: 115.9 kg

DRUGS (2)
  1. PIPERACILLIN AND TAZOBACTAM [Suspect]
     Indication: OSTEOMYELITIS
     Dosage: 4.5 G IN 50 ML 0.9% NACL EVERY 8 HOURS IV
     Route: 042
     Dates: start: 20120221, end: 20120316
  2. SODIUM CHLORIDE 0.9% [Suspect]
     Indication: OSTEOMYELITIS
     Dates: start: 20120221, end: 20120316

REACTIONS (3)
  - THROMBOCYTOPENIA [None]
  - LEUKOPENIA [None]
  - LIQUID PRODUCT PHYSICAL ISSUE [None]
